FAERS Safety Report 8785610 (Version 2)
Quarter: 2012Q4

REPORT INFORMATION
  Report Type: 
  Country: ES (occurrence: ES)
  Receive Date: 20120914
  Receipt Date: 20121022
  Transmission Date: 20130627
  Serious: Yes (Other)
  Sender: FDA-Public Use
  Company Number: ES-VERTEX PHARMACEUTICAL INC.-000000000000000665

PATIENT
  Sex: Male

DRUGS (9)
  1. INCIVO [Suspect]
     Indication: HEPATITIS C
     Dosage: Dosage Form: Tablet
     Route: 048
     Dates: start: 20120206, end: 20120430
  2. INCIVO [Suspect]
     Dosage: Dosage Form: Tablet
     Route: 048
  3. INCIVO [Suspect]
     Dosage: Dosage Form: Tablet
     Route: 048
  4. INCIVO [Suspect]
     Dosage: Dosage Form: Tablet
     Route: 048
     Dates: start: 20120206, end: 20120430
  5. RIBAVIRIN [Suspect]
     Indication: HEPATITIS C
     Dosage: Dosage Form: Unspecified
     Route: 065
     Dates: start: 20120206
  6. RIBAVIRIN [Suspect]
     Dosage: Dosage Form: Unspecified
     Route: 065
     Dates: end: 20120723
  7. PEGINTERFERON ALFA-2B [Concomitant]
     Indication: HEPATITIS C
     Dosage: UNK
     Route: 065
  8. PEGINTERFERON ALFA-2B [Concomitant]
     Route: 065
     Dates: start: 20120206, end: 20120723
  9. EPOETIN ZETA [Concomitant]
     Indication: ANAEMIA
     Dosage: 40000 IU, qw

REACTIONS (2)
  - Drug reaction with eosinophilia and systemic symptoms [Recovered/Resolved]
  - Anaemia [Unknown]
